FAERS Safety Report 9586566 (Version 3)
Quarter: 2013Q4

REPORT INFORMATION
  Report Type: Report from Study
  Country: JP (occurrence: JP)
  Receive Date: 20131003
  Receipt Date: 20131216
  Transmission Date: 20140711
  Serious: Yes (Other)
  Sender: FDA-Public Use
  Company Number: JP-ASTELLAS-2013JP010103

PATIENT
  Age: 66 Year
  Sex: Male
  Weight: 89 kg

DRUGS (9)
  1. MIRABEGRON [Suspect]
     Indication: HYPERTONIC BLADDER
     Dosage: 25 MG, UID/QD
     Route: 048
     Dates: start: 20130527, end: 20130624
  2. ADALAT L [Concomitant]
     Dosage: 40 MG, UNKNOWN/D
     Route: 048
  3. BLOPRESS [Concomitant]
     Dosage: 4 MG, UNKNOWN/D
     Route: 048
  4. BAYASPIRIN [Concomitant]
     Dosage: 100 MG, UID/QD
     Route: 048
  5. PLETAAL [Concomitant]
     Dosage: 200 MG, UNKNOWN/D
     Route: 048
  6. VOLTAREN                           /00372302/ [Concomitant]
     Dosage: 25 MG, PRN
     Route: 048
  7. AVOLVE [Concomitant]
     Dosage: 0.5 MG, UID/QD
     Route: 048
  8. HARNAL [Concomitant]
     Indication: HYPERTONIC BLADDER
     Dosage: 0.2 MG, UNKNOWN/D
     Route: 048
     Dates: start: 20121029
  9. EVIPROSTAT                         /00833501/ [Concomitant]
     Indication: HYPERTONIC BLADDER
     Dosage: 3 DF, UNKNOWN/D
     Route: 048
     Dates: start: 20130422

REACTIONS (1)
  - Ventricular extrasystoles [Recovering/Resolving]
